FAERS Safety Report 11825580 (Version 1)
Quarter: 2015Q4

REPORT INFORMATION
  Report Type: Spontaneous
  Country: US (occurrence: US)
  Receive Date: 20151211
  Receipt Date: 20151211
  Transmission Date: 20160305
  Serious: No
  Sender: FDA-Public Use
  Company Number: US-JNJFOC-20150721064

PATIENT
  Age: 72 Year
  Sex: Female

DRUGS (6)
  1. BISOPROLOL FUMARATE. [Concomitant]
     Active Substance: BISOPROLOL FUMARATE
  2. CALCIUM WITH VITAMIN D [Concomitant]
     Active Substance: CALCIUM\VITAMIN D
  3. PREDNISONE. [Concomitant]
     Active Substance: PREDNISONE
  4. ASPIRIN. [Concomitant]
     Active Substance: ASPIRIN
  5. IMBRUVICA [Suspect]
     Active Substance: IBRUTINIB
     Indication: CHRONIC LYMPHOCYTIC LEUKAEMIA
     Route: 048
     Dates: start: 20150619
  6. FOLIC ACID. [Concomitant]
     Active Substance: FOLIC ACID

REACTIONS (4)
  - Rash macular [Recovering/Resolving]
  - Glossodynia [Recovered/Resolved]
  - Dry mouth [Recovered/Resolved]
  - Contusion [Recovering/Resolving]

NARRATIVE: CASE EVENT DATE: 201508
